FAERS Safety Report 19025331 (Version 2)
Quarter: 2021Q1

REPORT INFORMATION
  Report Type: Spontaneous
  Country: US (occurrence: US)
  Receive Date: 20210318
  Receipt Date: 20210330
  Transmission Date: 20210420
  Serious: No
  Sender: FDA-Public Use
  Company Number: US-B.I. PHARMACEUTICALS,INC./RIDGEFIELD-2021-BI-089752

PATIENT
  Age: 85 Year
  Sex: Female

DRUGS (1)
  1. SPIRIVA [Suspect]
     Active Substance: TIOTROPIUM BROMIDE MONOHYDRATE
     Indication: PRODUCT USED FOR UNKNOWN INDICATION
     Dosage: 1 CAPSULE, 2 PUFFS, ONCE A DAY.
     Dates: start: 2015

REACTIONS (4)
  - Speech disorder [Unknown]
  - Product use issue [Recovered/Resolved]
  - Tremor [Unknown]
  - Memory impairment [Unknown]

NARRATIVE: CASE EVENT DATE: 20210311
